FAERS Safety Report 6736893-2 (Version None)
Quarter: 2010Q2

REPORT INFORMATION
  Report Type: 
  Country: None (occurrence: None)
  Receive Date: 20100521
  Receipt Date: 20100514
  Transmission Date: 20101027
  Serious: Yes (Hospitalization)
  Sender: FDA-Public Use
  Company Number: IT-ABBOTT-10P-083-0646044-00

PATIENT
  Age: 29 Year
  Sex: Female

DRUGS (8)
  1. VALPROATE SODIUM [Suspect]
     Indication: MAJOR DEPRESSION
  2. PAROXETINE HCL [Suspect]
     Indication: MAJOR DEPRESSION
  3. VENLAFAXINE [Suspect]
     Indication: MAJOR DEPRESSION
  4. PERPHENAZINE [Suspect]
     Indication: MAJOR DEPRESSION
  5. HALOPERIDOL [Suspect]
     Indication: MAJOR DEPRESSION
  6. RISPERIDONE [Suspect]
     Indication: MAJOR DEPRESSION
  7. RISPERIDONE [Suspect]
  8. BENZODIAZEPINE DERIVATIVES [Suspect]
     Indication: MAJOR DEPRESSION

REACTIONS (3)
  - DEPRESSION [None]
  - DRUG INEFFECTIVE [None]
  - HYPOMANIA [None]
